FAERS Safety Report 15376253 (Version 5)
Quarter: 2020Q3

REPORT INFORMATION
  Report Type: Report from Study
  Country: IL (occurrence: IL)
  Receive Date: 20180912
  Receipt Date: 20200928
  Transmission Date: 20201102
  Serious: Yes (Hospitalization, Other)
  Sender: FDA-Public Use
  Company Number: IL-SA-2017SA002205

PATIENT

DRUGS (3)
  1. IMIGLUCERASE [Suspect]
     Active Substance: IMIGLUCERASE
     Indication: GAUCHER^S DISEASE
     Dosage: 14.54 U/KG, QOW (800 U)
     Route: 041
     Dates: start: 19920101
  2. TRITACE [Concomitant]
     Active Substance: RAMIPRIL
     Route: 065
  3. CALCIUM + VIT D [Concomitant]
     Active Substance: CALCIUM\VITAMIN D
     Route: 065

REACTIONS (14)
  - Pain in extremity [Not Recovered/Not Resolved]
  - Pelvic pain [Not Recovered/Not Resolved]
  - Contusion [Not Recovered/Not Resolved]
  - Cough [Recovered/Resolved]
  - Fall [Unknown]
  - Insomnia [Not Recovered/Not Resolved]
  - Peripheral swelling [Not Recovered/Not Resolved]
  - Pelvic fracture [Recovering/Resolving]
  - Musculoskeletal chest pain [Recovered/Resolved]
  - Open fracture [Recovering/Resolving]
  - Blood pressure systolic increased [Unknown]
  - Rhinorrhoea [Recovered/Resolved]
  - Skin discolouration [Not Recovered/Not Resolved]
  - Blood pressure increased [Not Recovered/Not Resolved]

NARRATIVE: CASE EVENT DATE: 20161231
